FAERS Safety Report 8157174-9 (Version None)
Quarter: 2012Q1

REPORT INFORMATION
  Report Type: 
  Country: None (occurrence: None)
  Receive Date: 20120222
  Receipt Date: 20120213
  Transmission Date: 20120608
  Serious: Yes (Hospitalization)
  Sender: FDA-Public Use
  Company Number: PHHO2012US001741

PATIENT
  Sex: Male
  Weight: 127.53 kg

DRUGS (6)
  1. BLINDED AIN457 [Suspect]
     Indication: PSORIASIS
     Dosage: 150 MG, UNK
     Route: 058
     Dates: start: 20101004
  2. TRIAMTERENE [Suspect]
     Indication: HYPERTENSION
     Dosage: 37.5 MG, QD
     Route: 048
     Dates: start: 20100929
  3. ATENOLOL [Suspect]
     Indication: HYPERTENSION
     Dosage: 150 MG, QD
     Route: 048
     Dates: start: 20100930
  4. BLINDED PLACEBO [Suspect]
     Indication: PSORIASIS
     Dosage: 150 MG, UNK
     Route: 058
     Dates: start: 20101004
  5. LISINOPRIL [Suspect]
     Indication: HYPERTENSION
     Dosage: 10 MG, QD
     Route: 048
     Dates: start: 20101202
  6. BLINDED NO TREATMENT RECEIVED [Suspect]
     Indication: PSORIASIS
     Dosage: 150 MG, UNK
     Route: 058
     Dates: start: 20101004

REACTIONS (5)
  - ARRHYTHMIA [None]
  - SYNCOPE [None]
  - DIZZINESS [None]
  - NAUSEA [None]
  - HYPERTENSION [None]
